FAERS Safety Report 23628314 (Version 3)
Quarter: 2024Q2

REPORT INFORMATION
  Report Type: Report from Study
  Country: GB (occurrence: GB)
  Receive Date: 20240313
  Receipt Date: 20240516
  Transmission Date: 20240716
  Serious: Yes (Other)
  Sender: FDA-Public Use
  Company Number: GB-002147023-NVSC2024GB053779

PATIENT
  Sex: Female

DRUGS (1)
  1. COSENTYX [Suspect]
     Active Substance: SECUKINUMAB
     Indication: Ankylosing spondylitis
     Dosage: 150 MG, QMO (2 PRE-FILLED DISPOSABLE INJECTION)
     Route: 058
     Dates: start: 20230925

REACTIONS (17)
  - Lower respiratory tract infection [Unknown]
  - Nasal congestion [Unknown]
  - Wheezing [Unknown]
  - Cough [Unknown]
  - Epistaxis [Unknown]
  - Influenza like illness [Unknown]
  - Anosmia [Unknown]
  - Upper respiratory tract infection [Unknown]
  - Nasopharyngitis [Unknown]
  - Pyrexia [Unknown]
  - Oropharyngeal pain [Unknown]
  - Rhinitis [Unknown]
  - Nasal dryness [Unknown]
  - Malaise [Unknown]
  - Ear discomfort [Unknown]
  - Anxiety [Unknown]
  - Depression [Unknown]
